FAERS Safety Report 18171657 (Version 1)
Quarter: 2020Q3

REPORT INFORMATION
  Report Type: Spontaneous
  Country: GB (occurrence: GB)
  Receive Date: 20200819
  Receipt Date: 20200819
  Transmission Date: 20201103
  Serious: Yes (Other)
  Sender: FDA-Public Use
  Company Number: GB-PFIZER INC-2020319733

PATIENT
  Age: 50 Year
  Sex: Female
  Weight: 58 kg

DRUGS (17)
  1. AMITRIPTYLINE HYDROCHLORIDE. [Concomitant]
     Active Substance: AMITRIPTYLINE HYDROCHLORIDE
     Dosage: 1 DF, AS NEEDED, (FREQ:{ASNECESSARY};IN THE MORNING.)
     Dates: start: 20200407
  2. ZOPICLONE [Concomitant]
     Active Substance: ZOPICLONE
     Dosage: 1 DF, 1X/DAY, AT NIGHT.
     Dates: start: 20200504, end: 20200518
  3. TIBOLONE [Concomitant]
     Active Substance: TIBOLONE
     Dosage: 1 DF, 1X/DAY, EACH MORNING.
     Dates: start: 20200407
  4. CLONAZEPAM. [Concomitant]
     Active Substance: CLONAZEPAM
     Dosage: 1 DF, 1X/DAY, AT NIGHT.
     Dates: start: 20200407
  5. INCRUSE ELLIPTA [Concomitant]
     Active Substance: UMECLIDINIUM BROMIDE
     Dosage: 1 DF, 1X/DAY
     Route: 055
     Dates: start: 20200316
  6. DOXYCYCLINE. [Concomitant]
     Active Substance: DOXYCYCLINE
     Dosage: 2 DF, 1X/DAY
     Dates: start: 20200706, end: 20200713
  7. TRAMADOL. [Concomitant]
     Active Substance: TRAMADOL
     Dosage: 1 DF, 4X/DAY, FREQ:{ASNECESSARY};FOUR TIMES DAILY.
     Dates: start: 20200407
  8. TICAGRELOR. [Concomitant]
     Active Substance: TICAGRELOR
     Dosage: 2 DF, 1X/DAY, STOP NOVEMBER 2020.
     Dates: start: 20200407
  9. EPISENTA [Concomitant]
     Active Substance: VALPROATE SODIUM
     Dosage: 6 DF, 1X/DAY
     Dates: start: 20200120
  10. ACETYLSALICYLIC ACID [Concomitant]
     Active Substance: ASPIRIN
     Dosage: 1 DF, 1X/DAY
     Dates: start: 20200407
  11. MIRTAZAPINE. [Concomitant]
     Active Substance: MIRTAZAPINE
     Dosage: 1 DF, 1X/DAY, AT NIGHT.
     Dates: start: 20200407
  12. BISOPROLOL [Concomitant]
     Active Substance: BISOPROLOL
     Dosage: 1 DF, 1X/DAY
     Dates: start: 20200407
  13. RAMIPRIL. [Concomitant]
     Active Substance: RAMIPRIL
     Dosage: 1 DF, 1X/DAY
     Dates: start: 20200407
  14. DIHYDROCODEINE [Concomitant]
     Active Substance: DIHYDROCODEINE
     Dosage: 1 UNK, 2X/DAY, TAKE 1 OR 2 EVERY 12 HOURS.
     Dates: start: 20200504, end: 20200601
  15. GABAPENTIN. [Suspect]
     Active Substance: GABAPENTIN
     Dosage: 200 MG, 1X/DAY, INCREASING GRADUALLY
     Dates: start: 20200724
  16. DUORESP SPIROMAX [Concomitant]
     Active Substance: BUDESONIDE\FORMOTEROL
     Dosage: 4 DF, 1X/DAY
     Dates: start: 20200407
  17. SALBUTAMOL [Concomitant]
     Active Substance: ALBUTEROL
     Dosage: UNK, ONE OR TWO PUFFS TO BE INHALED UP TO FOUR TIMES.
     Route: 055
     Dates: start: 20200407

REACTIONS (3)
  - Depressed mood [Recovering/Resolving]
  - Blister [Unknown]
  - Suicidal ideation [Recovering/Resolving]

NARRATIVE: CASE EVENT DATE: 20200727
